FAERS Safety Report 9351449 (Version 2)
Quarter: 2013Q3

REPORT INFORMATION
  Report Type: Spontaneous
  Country: DE (occurrence: DE)
  Receive Date: 20130617
  Receipt Date: 20130906
  Transmission Date: 20140515
  Serious: Yes (Congenital Anomaly)
  Sender: FDA-Public Use
  Company Number: DE-NICOBRDEVP-2013-10439

PATIENT
  Sex: Male
  Weight: 4 kg

DRUGS (3)
  1. LAMOTRIGINE (UNKNOWN) [Suspect]
     Indication: EPILEPSY
     Dosage: ^1200 [MG/D ]/ INCREASING DOSE SINCE WK 6.0 FROM 300 MG/D TO 1200 MG/D MAX^ ]
     Route: 064
     Dates: start: 20070403, end: 20080102
  2. FRISIUM [Suspect]
     Indication: EPILEPSY
     Dosage: 10 [MG/D ]/ 10 MG TILL WK 23, THEN DECREASING DOSE. BEGIN IN WEEK 5
     Route: 064
  3. FOLIC ACID [Concomitant]
     Indication: PROPHYLAXIS OF NEURAL TUBE DEFECT
     Dosage: 5 [MG/D
     Route: 064
     Dates: start: 20070403, end: 20080102

REACTIONS (3)
  - Ventricular septal defect [Unknown]
  - Haemangioma congenital [Unknown]
  - Foetal exposure during pregnancy [Unknown]
